FAERS Safety Report 5764813-6 (Version None)
Quarter: 2008Q2

REPORT INFORMATION
  Report Type: 
  Country: None (occurrence: None)
  Receive Date: 20080609
  Receipt Date: 20080609
  Transmission Date: 20081010
  Serious: No
  Sender: FDA-Public Use
  Company Number: None

PATIENT
  Sex: Female
  Weight: 43.0917 kg

DRUGS (2)
  1. RIFAMPIN [Suspect]
     Indication: INFECTION
     Dosage: 300MG TWICE DAILY ORAL
     Route: 048
     Dates: start: 20071018
  2. RIFAMPIN [Suspect]
     Indication: INFECTION
     Dosage: 300MG TWICE DAILY ORAL
     Route: 048
     Dates: start: 20080528

REACTIONS (1)
  - ILL-DEFINED DISORDER [None]
